FAERS Safety Report 6589825-4 (Version None)
Quarter: 2010Q1

REPORT INFORMATION
  Report Type: 
  Country: None (occurrence: None)
  Receive Date: 20100219
  Receipt Date: 20100202
  Transmission Date: 20100710
  Serious: No
  Sender: FDA-Public Use
  Company Number: US-JNJFOC-20100202070

PATIENT
  Sex: Female
  Weight: 69.4 kg

DRUGS (8)
  1. FENTANYL-100 [Suspect]
     Indication: MUSCULOSKELETAL PAIN
     Route: 062
  2. FENTANYL-100 [Suspect]
     Indication: BACK PAIN
     Route: 062
  3. FENTANYL-100 [Suspect]
     Indication: NECK PAIN
     Route: 062
  4. FENTANYL-100 [Suspect]
     Route: 062
  5. FENTANYL-100 [Suspect]
     Route: 062
  6. FENTANYL-100 [Suspect]
     Route: 062
  7. SIMVASTATIN [Concomitant]
     Indication: BLOOD CHOLESTEROL INCREASED
     Route: 048
  8. CELEXA [Concomitant]
     Indication: ANXIETY
     Route: 048

REACTIONS (4)
  - DRUG ADMINISTERED AT INAPPROPRIATE SITE [None]
  - HYPOTENSION [None]
  - MUSCLE SPASMS [None]
  - WRONG TECHNIQUE IN DRUG USAGE PROCESS [None]
